FAERS Safety Report 17035825 (Version 1)
Quarter: 2019Q4

REPORT INFORMATION
  Report Type: Spontaneous
  Country: GB (occurrence: GB)
  Receive Date: 20191115
  Receipt Date: 20191115
  Transmission Date: 20200122
  Serious: Yes (Other)
  Sender: FDA-Public Use
  Company Number: GB-TEVA-2019-GB-1138149

PATIENT
  Age: 74 Year
  Sex: Female
  Weight: 68 kg

DRUGS (12)
  1. DOXAZOSIN [Concomitant]
     Active Substance: DOXAZOSIN MESYLATE
     Dosage: 1 DOSAGE FORMS 1 DAYS
     Dates: start: 20180521
  2. TORASEMIDE [Concomitant]
     Active Substance: TORSEMIDE
     Dosage: 1 DOSAGE FORMS 1 DAYS
     Dates: start: 20171013
  3. AMOXICILLIN. [Concomitant]
     Active Substance: AMOXICILLIN
     Dosage: 3 DOSAGE FORMS 1 DAYS
     Dates: start: 20180702, end: 20180709
  4. NITROFURANTOIN. [Suspect]
     Active Substance: NITROFURANTOIN
     Dates: start: 20180702
  5. FUROSEMIDE. [Concomitant]
     Active Substance: FUROSEMIDE
     Dosage: UNTIL TORASEMIDE AVAILABLE AGAIN. , 1 DOSAGE FORMS 1 DAYS
     Dates: start: 20180130
  6. LOSARTAN. [Concomitant]
     Active Substance: LOSARTAN
     Dosage: 1 DOSAGE FORMS
     Dates: start: 20171013
  7. ATENOLOL. [Concomitant]
     Active Substance: ATENOLOL
     Dosage: EACH MORNING , 1 DOSAGE FORMS 1 DAYS
     Dates: start: 20171013
  8. ESTRADIOL. [Concomitant]
     Active Substance: ESTRADIOL
     Dosage: AT NIGHT , 1 DOSAGE FORMS 1 WEEKS
     Dates: start: 20170323
  9. OMEPRAZOLE. [Concomitant]
     Active Substance: OMEPRAZOLE
     Dosage: 1 DOSAGE FORMS 1 DAYS
     Dates: start: 20170323
  10. HYDROCORTISONE. [Concomitant]
     Active Substance: HYDROCORTISONE
     Dosage: 2 DOSAGE FORMS DAILY; TWICE DAILY , 1 DOSAGE FORMS 1 DAYS
     Dates: start: 20170323
  11. PRAVASTATIN. [Concomitant]
     Active Substance: PRAVASTATIN
     Dosage: AT NIGHT , 1 DOSAGE FORMS 1 DAYS
     Dates: start: 20170323
  12. BETAMETHASONE VALERATE. [Concomitant]
     Active Substance: BETAMETHASONE VALERATE
     Dosage: USE ONCE OR TWICE DAILY
     Dates: start: 20170323

REACTIONS (3)
  - Chest discomfort [Unknown]
  - Respiration abnormal [Recovered/Resolved]
  - Malaise [Unknown]

NARRATIVE: CASE EVENT DATE: 20180709
